FAERS Safety Report 24624583 (Version 3)
Quarter: 2025Q1

REPORT INFORMATION
  Report Type: Spontaneous
  Country: US (occurrence: US)
  Receive Date: 20241115
  Receipt Date: 20250114
  Transmission Date: 20250409
  Serious: Yes (Other)
  Sender: PFIZER
  Company Number: US-PFIZER INC-PV202400082597

PATIENT
  Age: 8 Year
  Sex: Male

DRUGS (4)
  1. GENOTROPIN [Suspect]
     Active Substance: SOMATROPIN
     Indication: Hypopituitarism
     Dosage: 0.26 MG/KG/WK
     Route: 058
  2. GENOTROPIN [Suspect]
     Active Substance: SOMATROPIN
     Indication: Growth hormone deficiency
     Dosage: 1.1 MG 6X/WK WHICH EQUALS 0.25 MG/KG/WK
     Route: 058
     Dates: start: 202410
  3. GENOTROPIN [Suspect]
     Active Substance: SOMATROPIN
     Indication: Metabolic syndrome
     Dosage: 1.1 MG 6X/WK WHICH EQUALS 0.26 MG/KG/WK
     Route: 058
  4. GENOTROPIN [Suspect]
     Active Substance: SOMATROPIN
     Dosage: 0.9 MG 6X/WK, WHICH EQUALS 0.18 MG/KG/WK
     Route: 058

REACTIONS (4)
  - Pneumonia bacterial [Unknown]
  - Influenza [Unknown]
  - Product dose omission in error [Unknown]
  - Product dose omission issue [Unknown]

NARRATIVE: CASE EVENT DATE: 20231215
